FAERS Safety Report 20988941 (Version 2)
Quarter: 2022Q3

REPORT INFORMATION
  Report Type: Spontaneous
  Country: US (occurrence: US)
  Receive Date: 20220621
  Receipt Date: 20220707
  Transmission Date: 20221027
  Serious: No
  Sender: FDA-Public Use
  Company Number: US-SCALL-2022-US-010704

PATIENT
  Sex: Female
  Weight: 68.61 kg

DRUGS (1)
  1. AVANDIA [Suspect]
     Active Substance: ROSIGLITAZONE MALEATE
     Indication: Product used for unknown indication

REACTIONS (1)
  - Myalgia [Unknown]
